FAERS Safety Report 12474315 (Version 1)
Quarter: 2016Q2

REPORT INFORMATION
  Report Type: Spontaneous
  Country: US (occurrence: None)
  Receive Date: 20160616
  Receipt Date: 20160616
  Transmission Date: 20160815
  Serious: Yes (Death, Life-Threatening, Hospitalization)
  Sender: FDA-Public Use
  Company Number: None

PATIENT
  Age: 82 Year
  Sex: Male
  Weight: 79.38 kg

DRUGS (10)
  1. XARELTO [Concomitant]
     Active Substance: RIVAROXABAN
  2. PLAVIS [Concomitant]
  3. SPIRONOLACTONE. [Concomitant]
     Active Substance: SPIRONOLACTONE
  4. COZAAR [Concomitant]
     Active Substance: LOSARTAN POTASSIUM
  5. SIMVASTATIN. [Concomitant]
     Active Substance: SIMVASTATIN
  6. LASIX [Concomitant]
     Active Substance: FUROSEMIDE
  7. CENTRUM MEN 50 PLUS [Concomitant]
  8. COREG [Concomitant]
     Active Substance: CARVEDILOL
  9. BAYER ASPRIN [Concomitant]
  10. CAPECITABINE GENETEC [Suspect]
     Active Substance: CAPECITABINE
     Indication: COLORECTAL CANCER
     Dosage: 3 PER DAY 2 IN MORNING 1 AT NIGHT BY MOUTH
     Route: 048
     Dates: start: 20160304, end: 20160506

REACTIONS (12)
  - Diarrhoea [None]
  - Hypotension [None]
  - International normalised ratio increased [None]
  - Drug monitoring procedure not performed [None]
  - Rectal haemorrhage [None]
  - Hepatic failure [None]
  - Asthenia [None]
  - Unresponsive to stimuli [None]
  - Blister [None]
  - Internal haemorrhage [None]
  - Renal failure [None]
  - Contusion [None]
